FAERS Safety Report 16377825 (Version 6)
Quarter: 2019Q4

REPORT INFORMATION
  Report Type: Report from Study
  Country: US (occurrence: US)
  Receive Date: 20190531
  Receipt Date: 20191030
  Transmission Date: 20200122
  Serious: Yes (Hospitalization, Other)
  Sender: FDA-Public Use
  Company Number: PHEH2019US022937

PATIENT
  Age: 82 Year
  Sex: Female

DRUGS (1)
  1. ENTRESTO [Suspect]
     Active Substance: SACUBITRIL\VALSARTAN
     Indication: CARDIAC FAILURE CONGESTIVE
     Dosage: 1 DF (24/26 MG), QD
     Route: 048

REACTIONS (6)
  - Asthenia [Unknown]
  - Inappropriate schedule of product administration [Unknown]
  - Gait disturbance [Unknown]
  - Hypotension [Recovered/Resolved]
  - Underdose [Unknown]
  - Blood pressure decreased [Unknown]

NARRATIVE: CASE EVENT DATE: 20190516
